FAERS Safety Report 17684434 (Version 1)
Quarter: 2020Q2

REPORT INFORMATION
  Report Type: Spontaneous
  Country: US (occurrence: US)
  Receive Date: 20200419
  Receipt Date: 20200419
  Transmission Date: 20200714
  Serious: Yes (Disabling)
  Sender: FDA-Public Use
  Company Number: None

PATIENT
  Age: 61 Year
  Sex: Male
  Weight: 108.9 kg

DRUGS (2)
  1. CYCLOBENZAPRINE HYDROCHLORIDE 10 MG [Suspect]
     Active Substance: CYCLOBENZAPRINE HYDROCHLORIDE
     Indication: INJURY
     Dosage: ?          QUANTITY:1 TABLET(S);?
     Route: 048
     Dates: start: 20191102, end: 20200305
  2. DICLOFENAC POTASSIUM 50MG [Concomitant]

REACTIONS (3)
  - Vision blurred [None]
  - Eye disorder [None]
  - Visual impairment [None]

NARRATIVE: CASE EVENT DATE: 20200305
